FAERS Safety Report 19718681 (Version 1)
Quarter: 2021Q3

REPORT INFORMATION
  Report Type: Spontaneous
  Country: IT (occurrence: IT)
  Receive Date: 20210818
  Receipt Date: 20210818
  Transmission Date: 20211014
  Serious: Yes (Hospitalization, Other)
  Sender: FDA-Public Use
  Company Number: IT-AUROBINDO-AUR-APL-2021-034480

PATIENT
  Age: 33 Year
  Sex: Female

DRUGS (18)
  1. IDROCLOROTIAZIDE [Suspect]
     Active Substance: HYDROCHLOROTHIAZIDE
     Indication: HYPERTENSION
     Dosage: 6.25 MILLIGRAM, ONCE A DAY
     Route: 065
  2. LABETALOL [Suspect]
     Active Substance: LABETALOL\LABETALOL HYDROCHLORIDE
     Dosage: 2 MG PER MIN
     Route: 042
  3. MAGNESIUM SULFATE. [Suspect]
     Active Substance: MAGNESIUM SULFATE
     Indication: BLOOD PRESSURE INCREASED
     Dosage: UNK(40 MEQ IN SALINE SOLUTION 250 ML IN A 12?HOUR INFUSION PERIOD)
     Route: 065
  4. ATENOLOL. [Suspect]
     Active Substance: ATENOLOL
     Indication: PHAEOCHROMOCYTOMA
     Dosage: 12.5 MILLIGRAM, ONCE A DAY
     Route: 065
  5. MAGNESIUM SULFATE. [Suspect]
     Active Substance: MAGNESIUM SULFATE
     Indication: ARRHYTHMIA
     Dosage: UNK(40 MEQ IN SALINE SOLUTION 250 ML IN A 4?HOUR INFUSION PERIOD)
     Route: 042
  6. METOCLOPRAMIDE. [Suspect]
     Active Substance: METOCLOPRAMIDE
     Indication: DYSPEPSIA
     Dosage: 20 MILLIGRAM, ONCE A DAY(10 MG, BID)
     Route: 065
  7. BISOPROLOL [Suspect]
     Active Substance: BISOPROLOL
     Indication: HYPERTENSION
     Dosage: 2.5 MILLIGRAM, ONCE A DAY
     Route: 065
  8. METOCLOPRAMIDE. [Suspect]
     Active Substance: METOCLOPRAMIDE
     Indication: NAUSEA
     Dosage: 10 MILLIGRAM, ONCE A DAY
     Route: 048
  9. NIFEDIPINE. [Suspect]
     Active Substance: NIFEDIPINE
     Dosage: 20 MILLIGRAM, ONCE A DAY
     Route: 065
  10. URAPIDIL [Suspect]
     Active Substance: URAPIDIL
     Dosage: 0.5 MILLIGRAM(0.5 MG PER MIN)
     Route: 042
  11. INSULIN LISPRO [Suspect]
     Active Substance: INSULIN LISPRO
     Indication: GESTATIONAL DIABETES
     Dosage: UNK(6U S.C. AT 7.00 AM, 10U S.C. AT 12.00 AM, 10U S.C. AT 06.00 PM)
     Route: 065
  12. POTASSIUM CHLORIDE. [Suspect]
     Active Substance: POTASSIUM CHLORIDE
     Indication: HYPOKALAEMIA
     Dosage: UNK(40 MEQ IN SALINE SOLUTION 250 ML IN 6?HOUR INFUSION PERIOD)
     Route: 065
  13. DOXAZOSIN [Suspect]
     Active Substance: DOXAZOSIN MESYLATE
     Indication: PHAEOCHROMOCYTOMA
     Dosage: UNK (UP TO 14 MG/DAY)
     Route: 065
  14. INSULIN GLARGINE [Suspect]
     Active Substance: INSULIN GLARGINE
     Indication: GESTATIONAL DIABETES
     Dosage: UNK(15U S.C. AT 09.00 P.M.)
     Route: 065
  15. LABETALOL [Suspect]
     Active Substance: LABETALOL\LABETALOL HYDROCHLORIDE
     Indication: HYPERTENSIVE CRISIS
     Dosage: 20 MILLIGRAM(20 MG OVER 2 MIN)
     Route: 042
  16. METHYLDOPA. [Suspect]
     Active Substance: METHYLDOPA
     Indication: HYPERTENSION
     Dosage: 1500 MILLIGRAM, ONCE A DAY(500 MG, TID)
     Route: 065
  17. NIFEDIPINE. [Suspect]
     Active Substance: NIFEDIPINE
     Indication: BLOOD PRESSURE INADEQUATELY CONTROLLED
     Dosage: 30 MILLIGRAM, ONCE A DAY
     Route: 065
  18. URAPIDIL [Suspect]
     Active Substance: URAPIDIL
     Indication: BLOOD PRESSURE INCREASED
     Dosage: 25 MILLIGRAM(25 MG OVER 5 MIN)
     Route: 040

REACTIONS (20)
  - Phaeochromocytoma crisis [Unknown]
  - Hypertension [Unknown]
  - Asthenia [Unknown]
  - Premature labour [Unknown]
  - Blood catecholamines abnormal [Unknown]
  - Proteinuria [Unknown]
  - Irritability [Unknown]
  - Illness [Unknown]
  - Hypokalaemia [Unknown]
  - Tachycardia [Unknown]
  - Palpitations [Unknown]
  - Exposure during pregnancy [Unknown]
  - Myalgia [Unknown]
  - Skin striae [Unknown]
  - Anxiety [Unknown]
  - Phaeochromocytoma [Unknown]
  - Renal disorder [Unknown]
  - Live birth [Unknown]
  - Product selection error [Unknown]
  - Headache [Unknown]
